FAERS Safety Report 7585151-5 (Version None)
Quarter: 2011Q3

REPORT INFORMATION
  Report Type: 
  Country: None (occurrence: None)
  Receive Date: 20110701
  Receipt Date: 20110621
  Transmission Date: 20111222
  Serious: Yes (Hospitalization)
  Sender: FDA-Public Use
  Company Number: IT-BIOGENIDEC-2011BI023424

PATIENT
  Age: 50 Year
  Sex: Male

DRUGS (5)
  1. OMEPRAZOLE [Concomitant]
     Route: 048
  2. TYSABRI [Suspect]
     Indication: RELAPSING-REMITTING MULTIPLE SCLEROSIS
     Route: 042
     Dates: start: 20090728, end: 20100916
  3. ASPIRIN [Concomitant]
     Route: 048
  4. LISINOPRIL [Concomitant]
     Route: 048
  5. INSULINE [Concomitant]
     Route: 058

REACTIONS (1)
  - RENAL CELL CARCINOMA [None]
